FAERS Safety Report 5401304-6 (Version None)
Quarter: 2007Q3

REPORT INFORMATION
  Report Type: 
  Country: None (occurrence: None)
  Receive Date: 20070731
  Receipt Date: 20070724
  Transmission Date: 20080115
  Serious: Yes (Other)
  Sender: FDA-Public Use
  Company Number: US-GENENTECH-236802

PATIENT
  Sex: Female

DRUGS (4)
  1. RAPTIVA [Suspect]
     Indication: PSORIASIS
     Dosage: 0.8 MG, 1/WEEK
     Route: 058
     Dates: start: 20070104, end: 20070307
  2. TYLENOL (CAPLET) [Concomitant]
     Indication: PAIN IN EXTREMITY
     Dosage: UNK, PRN
  3. CLOBETASOL CREAM [Concomitant]
     Indication: DRUG USE FOR UNKNOWN INDICATION
  4. DOVONEX [Concomitant]
     Indication: DRUG USE FOR UNKNOWN INDICATION

REACTIONS (2)
  - BLOOD CHOLESTEROL INCREASED [None]
  - HYPERTENSION [None]
